FAERS Safety Report 12596188 (Version 1)
Quarter: 2016Q3

REPORT INFORMATION
  Report Type: Report from Study
  Country: US (occurrence: US)
  Receive Date: 20160726
  Receipt Date: 20160726
  Transmission Date: 20161109
  Serious: No
  Sender: FDA-Public Use
  Company Number: US-AMGEN-USASL2016082278

PATIENT
  Age: 63 Year
  Sex: Male

DRUGS (4)
  1. DEXAMETHASONE. [Concomitant]
     Active Substance: DEXAMETHASONE
     Dosage: UNK UNK, 2 TIMES/WK
  2. REVLIMID [Concomitant]
     Active Substance: LENALIDOMIDE
     Dosage: UNK UNK, QD
  3. KYPROLIS [Suspect]
     Active Substance: CARFILZOMIB
     Indication: PLASMA CELL MYELOMA
     Dosage: UNK UNK, 2 TIMES/WK
     Route: 065
     Dates: start: 201511
  4. KYPROLIS [Suspect]
     Active Substance: CARFILZOMIB
     Dosage: UNK, 2 DAYS PER WEEK EVERY OTHER WEEK
     Route: 065
     Dates: start: 201604

REACTIONS (1)
  - Hangover [Recovered/Resolved]
